FAERS Safety Report 4389087-2 (Version None)
Quarter: 2004Q2

REPORT INFORMATION
  Report Type: 
  Country: None (occurrence: None)
  Receive Date: 20040628
  Receipt Date: 20040624
  Transmission Date: 20050107
  Serious: Yes (Hospitalization)
  Sender: FDA-Public Use
  Company Number: US-SHR-03-018647

PATIENT
  Sex: Male

DRUGS (1)
  1. BETASERON [Suspect]
     Dosage: SUBCUTANEOUS
     Route: 058
     Dates: start: 20030701, end: 20030901

REACTIONS (1)
  - UNEVALUABLE EVENT [None]
